FAERS Safety Report 6501543-7 (Version None)
Quarter: 2009Q4

REPORT INFORMATION
  Report Type: 
  Country: None (occurrence: None)
  Receive Date: 20091216
  Receipt Date: 20091207
  Transmission Date: 20100525
  Serious: Yes (Other)
  Sender: FDA-Public Use
  Company Number: B0612564A

PATIENT
  Age: 58 Year
  Sex: Male

DRUGS (3)
  1. VENTOLIN [Suspect]
     Indication: ASTHMA
     Route: 055
  2. SERETIDE DISKUS [Concomitant]
     Indication: ASTHMA
     Dosage: 2PUFF TWICE PER DAY
     Route: 055
  3. SPIRIVA [Concomitant]
     Indication: ASTHMA
     Dosage: 1UNIT PER DAY
     Route: 055

REACTIONS (2)
  - DRUG DEPENDENCE [None]
  - OVERDOSE [None]
